FAERS Safety Report 10769727 (Version 4)
Quarter: 2015Q1

REPORT INFORMATION
  Report Type: Spontaneous
  Country: JP (occurrence: JP)
  Receive Date: 20150206
  Receipt Date: 20150319
  Transmission Date: 20150721
  Serious: Yes (Death, Hospitalization)
  Sender: FDA-Public Use
  Company Number: JP-PFIZER INC-2015028186

PATIENT
  Age: 86 Year
  Sex: Male
  Weight: 43 kg

DRUGS (17)
  1. ANAEMETRO [Suspect]
     Active Substance: METRONIDAZOLE
     Indication: PSEUDOMEMBRANOUS COLITIS
     Dosage: 500 MG, 3X/DAY
     Route: 042
     Dates: start: 20150108, end: 20150116
  2. PREDONINE [Concomitant]
     Active Substance: PREDNISOLONE\PREDNISOLONE ACETATE\PREDNISOLONE SODIUM SUCCINATE
     Indication: ORGANISING PNEUMONIA
     Dosage: 10 MG, 1X/DAY
     Route: 042
     Dates: start: 20150108, end: 20150130
  3. GASTER [Concomitant]
     Active Substance: FAMOTIDINE
     Indication: PROPHYLAXIS AGAINST GASTROINTESTINAL ULCER
     Dosage: 20 MG, 2X/DAY
     Route: 042
     Dates: start: 20150108
  4. SERENACE [Concomitant]
     Active Substance: HALOPERIDOL
     Indication: DELIRIUM
     Dosage: 1.25 MG, 1X/DAY
     Route: 041
     Dates: start: 20150108
  5. CELECOX [Concomitant]
     Active Substance: CELECOXIB
     Indication: ANTIPYRESIS
     Dosage: 100 MG, 2X/DAY
     Route: 048
     Dates: start: 20141211, end: 20150107
  6. ZOSYN [Concomitant]
     Active Substance: PIPERACILLIN SODIUM\TAZOBACTAM SODIUM
     Indication: PNEUMONIA ASPIRATION
     Dosage: 4.5 G, 2X/DAY
     Route: 042
     Dates: start: 20141229, end: 20150104
  7. ISCOTIN [Concomitant]
     Active Substance: ISONIAZID
     Indication: ANTIBIOTIC PROPHYLAXIS
     Dosage: 200 MG, 1X/DAY
     Route: 048
     Dates: start: 20140925, end: 20150107
  8. UNASYN S [Concomitant]
     Indication: PNEUMONIA ASPIRATION
     Dosage: 3 G, 3X/DAY
     Route: 042
     Dates: start: 20141225, end: 20141229
  9. ROZEREM [Concomitant]
     Active Substance: RAMELTEON
     Indication: DELIRIUM
     Dosage: 8 MG, 1X/DAY
     Route: 048
     Dates: start: 20141008, end: 20150107
  10. FLAGYL [Suspect]
     Active Substance: METRONIDAZOLE\METRONIDAZOLE HYDROCHLORIDE
     Indication: PSEUDOMEMBRANOUS COLITIS
     Dosage: 500 MG, 3X/DAY
     Route: 048
     Dates: start: 20150106, end: 20150107
  11. SULFAMETHOXAZOLE AND TRIMETHOPRIM [Concomitant]
     Active Substance: SULFAMETHOXAZOLE\TRIMETHOPRIM
     Indication: PROPHYLAXIS
     Dosage: 1 DF, 1X/DAY
     Route: 048
     Dates: start: 20140925, end: 20150107
  12. PREDNISOLONE. [Concomitant]
     Active Substance: PREDNISOLONE
     Indication: ORGANISING PNEUMONIA
     Dosage: 5 MG, 1X/DAY
     Route: 048
     Dates: start: 20141229, end: 20150108
  13. CLARITH [Concomitant]
     Active Substance: CLARITHROMYCIN
     Indication: ANTIINFLAMMATORY THERAPY
     Dosage: 200 MG, 1X/DAY
     Route: 048
     Dates: start: 20141213, end: 20150107
  14. CIPROXAN [Concomitant]
     Active Substance: CIPROFLOXACIN
     Indication: PNEUMONIA ASPIRATION
     Dosage: 200 MG, 2X/DAY
     Route: 042
     Dates: start: 20150104, end: 20150106
  15. SEROQUEL [Concomitant]
     Active Substance: QUETIAPINE FUMARATE
     Indication: DELIRIUM
     Dosage: 25 MG, 4X/DAY
     Route: 048
     Dates: start: 20141001, end: 20150107
  16. ABILIFY [Concomitant]
     Active Substance: ARIPIPRAZOLE
     Indication: DELIRIUM
     Dosage: 2 MG, 1X/DAY
     Route: 048
     Dates: start: 20141009, end: 20150107
  17. CLINDAMYCIN [Concomitant]
     Active Substance: CLINDAMYCIN\CLINDAMYCIN PHOSPHATE
     Indication: PNEUMONIA ASPIRATION
     Dosage: 600 MG, 2X/DAY
     Route: 042
     Dates: start: 20150104, end: 20150106

REACTIONS (4)
  - Nuchal rigidity [Not Recovered/Not Resolved]
  - Pneumonia aspiration [Fatal]
  - Tremor [Recovering/Resolving]
  - Dysphagia [Recovered/Resolved]

NARRATIVE: CASE EVENT DATE: 20150109
